FAERS Safety Report 23042480 (Version 1)
Quarter: 2023Q4

REPORT INFORMATION
  Report Type: Report from Study
  Country: US (occurrence: US)
  Receive Date: 20231008
  Receipt Date: 20231008
  Transmission Date: 20240109
  Serious: Yes (Hospitalization)
  Sender: FDA-Public Use
  Company Number: US-ABBVIE-5438569

PATIENT
  Sex: Male

DRUGS (1)
  1. VENCLEXTA [Suspect]
     Active Substance: VENETOCLAX
     Indication: Mantle cell lymphoma
     Dosage: TAKE 1 TABLET BY MOUTH (100MG) ONCE DAILY?FORM STRENGTH - 100 MILLIGRAMS
     Route: 048
     Dates: end: 202309

REACTIONS (4)
  - Malignant neoplasm progression [Not Recovered/Not Resolved]
  - Off label use [Recovered/Resolved]
  - Asthenia [Unknown]
  - Gait inability [Unknown]
